FAERS Safety Report 15960112 (Version 1)
Quarter: 2019Q1

REPORT INFORMATION
  Report Type: Spontaneous
  Country: US (occurrence: US)
  Receive Date: 20190214
  Receipt Date: 20190214
  Transmission Date: 20190417
  Serious: No
  Sender: FDA-Public Use
  Company Number: US-ROCHE-2155126

PATIENT
  Sex: Female

DRUGS (6)
  1. NOVOLIN [Concomitant]
     Active Substance: INSULIN HUMAN
     Route: 065
  2. CRANBERRY. [Concomitant]
     Active Substance: CRANBERRY
     Route: 065
  3. ASPIRIN. [Concomitant]
     Active Substance: ASPIRIN
     Route: 065
  4. LISINOPRIL. [Concomitant]
     Active Substance: LISINOPRIL
     Route: 065
  5. DESONIDE. [Concomitant]
     Active Substance: DESONIDE
     Route: 065
  6. NOVOLIN [Suspect]
     Active Substance: INSULIN HUMAN
     Indication: NASAL CAVITY CANCER
     Dosage: TAKE 1 CAP
     Route: 048
     Dates: start: 20180115

REACTIONS (4)
  - Ageusia [Not Recovered/Not Resolved]
  - Off label use [Unknown]
  - Intentional product use issue [Unknown]
  - Alopecia [Not Recovered/Not Resolved]
